FAERS Safety Report 4480812-9 (Version None)
Quarter: 2004Q4

REPORT INFORMATION
  Report Type: 
  Country: None (occurrence: None)
  Receive Date: 20041019
  Receipt Date: 20041008
  Transmission Date: 20050328
  Serious: Yes (Hospitalization)
  Sender: FDA-Public Use
  Company Number: 2004237775US

PATIENT
  Sex: Female

DRUGS (1)
  1. BEXTRA [Suspect]
     Dosage: 20 MG
     Dates: start: 20040701

REACTIONS (2)
  - CARDIAC STRESS TEST ABNORMAL [None]
  - SICK SINUS SYNDROME [None]
